FAERS Safety Report 9236408 (Version 1)
Quarter: 2013Q2

REPORT INFORMATION
  Report Type: Spontaneous
  Country: FR (occurrence: FR)
  Receive Date: 20130417
  Receipt Date: 20130417
  Transmission Date: 20140414
  Serious: Yes (Hospitalization)
  Sender: FDA-Public Use
  Company Number: FR-009507513-1304FRA005336

PATIENT
  Age: 73 Year
  Sex: Male

DRUGS (4)
  1. ESMERON [Suspect]
     Indication: ANAESTHESIA
     Dosage: 1 DF, ONCE
     Route: 042
     Dates: start: 20121026, end: 20121026
  2. PROPOFOL LIPURO [Concomitant]
     Dosage: 1 DF, ONCE
     Route: 042
     Dates: start: 20121026, end: 20121026
  3. REMIFENTANIL HYDROCHLORIDE [Concomitant]
     Indication: ANAESTHESIA
     Dosage: UNK
     Route: 042
     Dates: start: 20121026, end: 20121026
  4. KETAMINE HYDROCHLORIDE [Concomitant]
     Indication: ANAESTHESIA
     Dosage: 1 DF, ONCE
     Route: 042
     Dates: start: 20121026, end: 20121026

REACTIONS (1)
  - Cardio-respiratory arrest [Recovered/Resolved]
